FAERS Safety Report 19454156 (Version 3)
Quarter: 2021Q3

REPORT INFORMATION
  Report Type: Report from Study
  Country: US (occurrence: US)
  Receive Date: 20210623
  Receipt Date: 20210930
  Transmission Date: 20211014
  Serious: Yes (Other)
  Sender: FDA-Public Use
  Company Number: US-JAZZ-2021-US-011212

PATIENT
  Sex: Female

DRUGS (1)
  1. XYREM [Suspect]
     Active Substance: SODIUM OXYBATE
     Indication: NARCOLEPSY
     Dosage: 4.5 GRAM, BID
     Route: 048
     Dates: start: 200606

REACTIONS (5)
  - Immunodeficiency common variable [Unknown]
  - Sleep apnoea syndrome [Unknown]
  - Hypothyroidism [Unknown]
  - Arthropathy [Unknown]
  - Claustrophobia [Not Recovered/Not Resolved]

NARRATIVE: CASE EVENT DATE: 2018
